FAERS Safety Report 23819958 (Version 1)
Quarter: 2024Q2

REPORT INFORMATION
  Report Type: Spontaneous
  Country: FI (occurrence: FI)
  Receive Date: 20240506
  Receipt Date: 20240506
  Transmission Date: 20240716
  Serious: Yes (Other)
  Sender: FDA-Public Use
  Company Number: None

PATIENT
  Age: 87 Year
  Sex: Female

DRUGS (2)
  1. ZOLEDRONIC ACID [Suspect]
     Active Substance: ZOLEDRONIC ACID
     Indication: Osteoporosis
     Dosage: 5MG ONE-TIME DOSE ANNUALLY, 5 MG ONCE A YEAR
     Dates: start: 20210802, end: 20230827
  2. CALCIUM\CHOLECALCIFEROL [Concomitant]
     Active Substance: CALCIUM\CHOLECALCIFEROL
     Indication: Osteoporosis
     Dosage: 1 TABLET 2 TIMES A DAY / 1 TABLET TWICE A DAY
     Dates: start: 20210131

REACTIONS (5)
  - Osteitis [Recovered/Resolved]
  - Osteolysis [Recovered/Resolved]
  - Tooth extraction [Recovered/Resolved]
  - Jaw fracture [Recovered/Resolved]
  - Jaw fistula [Recovered/Resolved]

NARRATIVE: CASE EVENT DATE: 20230901
